FAERS Safety Report 6095051-8 (Version None)
Quarter: 2009Q1

REPORT INFORMATION
  Report Type: 
  Country: None (occurrence: None)
  Receive Date: 20090227
  Receipt Date: 20080118
  Transmission Date: 20090719
  Serious: No
  Sender: FDA-Public Use
  Company Number: A0701966A

PATIENT
  Age: 37 Year
  Sex: Male

DRUGS (2)
  1. LAMICTAL [Suspect]
     Dosage: 450MG PER DAY
     Route: 048
     Dates: start: 20070701
  2. NO CONCURRENT MEDICATION [Concomitant]

REACTIONS (2)
  - ILL-DEFINED DISORDER [None]
  - TINNITUS [None]
